FAERS Safety Report 4546285-2 (Version None)
Quarter: 2005Q1

REPORT INFORMATION
  Report Type: 
  Country: None (occurrence: None)
  Receive Date: 20050106
  Receipt Date: 20041224
  Transmission Date: 20050727
  Serious: Yes (Other)
  Sender: FDA-Public Use
  Company Number: AU-GLAXOSMITHKLINE-B0363198A

PATIENT
  Sex: Male
  Weight: 100 kg

DRUGS (1)
  1. ACETAMINOPHEN [Suspect]
     Route: 048
     Dates: start: 20041224

REACTIONS (1)
  - INTENTIONAL MISUSE [None]
